FAERS Safety Report 8808134 (Version 1)
Quarter: 2012Q4

REPORT INFORMATION
  Report Type: Report from Study
  Country: CA (occurrence: CA)
  Receive Date: 20120925
  Receipt Date: 20120925
  Transmission Date: 20130627
  Serious: Yes (Other)
  Sender: FDA-Public Use
  Company Number: CA-ROCHE-1131816

PATIENT
  Sex: Female
  Weight: 56.75 kg

DRUGS (6)
  1. HERCEPTIN [Suspect]
     Indication: BREAST CANCER METASTATIC
     Route: 042
     Dates: start: 20110513
  2. HERCEPTIN [Suspect]
     Route: 042
     Dates: start: 20110603
  3. HERCEPTIN [Suspect]
     Route: 042
     Dates: start: 20110715, end: 20120323
  4. XELODA [Suspect]
     Indication: PRODUCT USED FOR UNKNOWN INDICATION
     Route: 048
  5. PREDNISONE [Concomitant]
  6. LAPATINIB [Concomitant]

REACTIONS (1)
  - Neoplasm progression [Not Recovered/Not Resolved]
